FAERS Safety Report 7888469-1 (Version None)
Quarter: 2011Q4

REPORT INFORMATION
  Report Type: 
  Country: None (occurrence: None)
  Receive Date: 20111103
  Receipt Date: 20111020
  Transmission Date: 20120403
  Serious: Yes (Life-Threatening, Hospitalization, Other)
  Sender: FDA-Public Use
  Company Number: JP-ROCHE-1003527

PATIENT
  Sex: Male
  Weight: 66 kg

DRUGS (4)
  1. XELODA [Suspect]
     Route: 048
     Dates: start: 20110922, end: 20111005
  2. XELODA [Suspect]
     Indication: RECTAL CANCER
     Route: 048
     Dates: start: 20110823, end: 20110905
  3. AVASTIN [Suspect]
     Indication: RECTAL CANCER METASTATIC
     Route: 041
     Dates: start: 20110823, end: 20110823
  4. OXALIPLATIN [Concomitant]
     Indication: RECTAL CANCER METASTATIC
     Route: 041
     Dates: start: 20110823, end: 20110823

REACTIONS (6)
  - STOMATITIS [None]
  - JAUNDICE [None]
  - DIARRHOEA [None]
  - BONE MARROW FAILURE [None]
  - NEUTROPHIL COUNT DECREASED [None]
  - INFECTION [None]
